FAERS Safety Report 9226082 (Version 1)
Quarter: 2013Q2

REPORT INFORMATION
  Report Type: Spontaneous
  Country: US (occurrence: US)
  Receive Date: 20130411
  Receipt Date: 20130411
  Transmission Date: 20140414
  Serious: Yes (Hospitalization)
  Sender: FDA-Public Use
  Company Number: US-MILLENNIUM PHARMACEUTICALS, INC.-2013-02758

PATIENT
  Age: 65 Year
  Sex: Male
  Weight: 100 kg

DRUGS (1)
  1. VELCADE [Suspect]
     Indication: MANTLE CELL LYMPHOMA
     Route: 065

REACTIONS (4)
  - Clostridium difficile colitis [Unknown]
  - Dyspnoea [Unknown]
  - Gastroenteritis viral [Recovered/Resolved]
  - Neuropathy peripheral [Unknown]
